APPROVED DRUG PRODUCT: BANCAP
Active Ingredient: ACETAMINOPHEN; BUTALBITAL
Strength: 325MG;50MG
Dosage Form/Route: CAPSULE;ORAL
Application: A088889 | Product #001
Applicant: FOREST PHARMACEUTICALS INC
Approved: Jan 16, 1986 | RLD: No | RS: No | Type: DISCN